FAERS Safety Report 9862706 (Version 2)
Quarter: 2014Q1

REPORT INFORMATION
  Report Type: Spontaneous
  Country: US (occurrence: US)
  Receive Date: 20140203
  Receipt Date: 20140212
  Transmission Date: 20141002
  Serious: Yes (Hospitalization)
  Sender: FDA-Public Use
  Company Number: US-BAXTER-2014BAX004223

PATIENT
  Sex: Female

DRUGS (3)
  1. DIANEAL LOW CALCIUM [Suspect]
     Indication: PERITONEAL DIALYSIS
     Route: 033
     Dates: end: 201401
  2. DIANEAL LOW CALCIUM [Suspect]
     Indication: PERITONEAL DIALYSIS
     Route: 033
  3. DIANEAL LOW CALCIUM [Suspect]
     Route: 033
     Dates: end: 201401

REACTIONS (5)
  - Small intestinal obstruction [Recovering/Resolving]
  - Peritoneal adhesions [Recovering/Resolving]
  - Fluid overload [Recovering/Resolving]
  - Hypertension [Recovering/Resolving]
  - Generalised oedema [Recovering/Resolving]
